FAERS Safety Report 25629554 (Version 1)
Quarter: 2025Q3

REPORT INFORMATION
  Report Type: Spontaneous
  Country: US (occurrence: US)
  Receive Date: 20250731
  Receipt Date: 20250731
  Transmission Date: 20251020
  Serious: Yes (Hospitalization)
  Sender: NOVO NORDISK
  Company Number: US-NOVOPROD-1486430

PATIENT
  Age: 46 Year
  Sex: Male

DRUGS (1)
  1. ESPEROCT [Suspect]
     Active Substance: ANTIHEMOPHILIC FACTOR, HUMAN RECOMBINANT
     Indication: Factor VIII deficiency
     Dates: start: 20201218

REACTIONS (3)
  - Gallbladder operation [Unknown]
  - Endotracheal intubation [Unknown]
  - Malaise [Unknown]

NARRATIVE: CASE EVENT DATE: 20250701
